FAERS Safety Report 13682025 (Version 4)
Quarter: 2017Q3

REPORT INFORMATION
  Report Type: Spontaneous
  Country: NZ (occurrence: NZ)
  Receive Date: 20170623
  Receipt Date: 20170721
  Transmission Date: 20171127
  Serious: Yes (Death, Hospitalization, Other)
  Sender: FDA-Public Use
  Company Number: NZ-B.I. PHARMACEUTICALS,INC./RIDGEFIELD-2017-BI-034446

PATIENT
  Age: 73 Year
  Sex: Female
  Weight: 61 kg

DRUGS (1)
  1. PRADAXA [Suspect]
     Active Substance: DABIGATRAN ETEXILATE MESYLATE
     Indication: PULMONARY EMBOLISM
     Route: 065
     Dates: start: 20170515, end: 20170609

REACTIONS (13)
  - Dyspnoea [Unknown]
  - Haemoptysis [Unknown]
  - Thrombin time prolonged [Unknown]
  - General physical health deterioration [Unknown]
  - Metastatic neoplasm [Fatal]
  - Activated partial thromboplastin time prolonged [Unknown]
  - Gastrointestinal haemorrhage [Fatal]
  - Musculoskeletal pain [Unknown]
  - Pulmonary embolism [Unknown]
  - Rectal haemorrhage [Unknown]
  - Intestinal obstruction [Unknown]
  - Hypovolaemic shock [Fatal]
  - Breast cancer [Unknown]

NARRATIVE: CASE EVENT DATE: 201706
